FAERS Safety Report 23536927 (Version 1)
Quarter: 2024Q1

REPORT INFORMATION
  Report Type: Spontaneous
  Country: US (occurrence: US)
  Receive Date: 20240219
  Receipt Date: 20240219
  Transmission Date: 20240410
  Serious: No
  Sender: FDA-Public Use
  Company Number: US-HORIZON THERAPEUTICS-HZN-2023-007456

PATIENT

DRUGS (2)
  1. TEPEZZA [Suspect]
     Active Substance: TEPROTUMUMAB-TRBW
     Indication: Endocrine ophthalmopathy
     Dosage: UNK  (FIRST INFUSION)
     Route: 042
  2. TEPEZZA [Suspect]
     Active Substance: TEPROTUMUMAB-TRBW
     Dosage: UNK  (LAST INFUSION)
     Route: 042

REACTIONS (4)
  - Inflammatory bowel disease [Unknown]
  - Condition aggravated [Unknown]
  - Tinnitus [Recovered/Resolved]
  - Fatigue [Unknown]
